FAERS Safety Report 17324463 (Version 4)
Quarter: 2020Q1

REPORT INFORMATION
  Report Type: Spontaneous
  Country: NL (occurrence: NL)
  Receive Date: 20200127
  Receipt Date: 20200320
  Transmission Date: 20200409
  Serious: Yes (Hospitalization, Disabling, Other)
  Sender: FDA-Public Use
  Company Number: NL-MYLANLABS-2020M1008470

PATIENT
  Age: 83 Year
  Sex: Male

DRUGS (6)
  1. SYMMETREL [Concomitant]
     Active Substance: AMANTADINE HYDROCHLORIDE
     Dosage: 3 TABLETS PER DAY, (AT 9:00, 13:00 AND 21:00)
     Route: 048
  2. CARBIDOPA/LEVODOPA [Suspect]
     Active Substance: CARBIDOPA\LEVODOPA
     Indication: PARKINSON^S DISEASE
     Dosage: UNK
     Route: 048
  3. RASAGILINE. [Concomitant]
     Active Substance: RASAGILINE
     Dosage: 1 DOSAGE FORM, QD (1 TABLET PER DAY)
     Route: 048
  4. SINEMET [Suspect]
     Active Substance: CARBIDOPA\LEVODOPA
     Indication: PARKINSON^S DISEASE
     Dosage: SINEMET CR 250,
     Route: 048
     Dates: start: 2018, end: 2018
  5. SINEMET [Suspect]
     Active Substance: CARBIDOPA\LEVODOPA
     Indication: PARKINSON^S DISEASE
     Dosage: SINEMET  125, 2 TAB AT 09:00, 2 TAB AT 13:00, 2 TAB AT 17:00, 2 TAB AT 21:00, 2 TAB DURING THE
  6. SINEMET [Suspect]
     Active Substance: CARBIDOPA\LEVODOPA
     Indication: PARKINSON^S DISEASE
     Dosage: UNK (SINEMET 62,5)
     Dates: start: 2018, end: 2018

REACTIONS (25)
  - Nausea [Unknown]
  - Gait inability [Unknown]
  - Product availability issue [Recovered/Resolved]
  - Swelling [Unknown]
  - Ocular hyperaemia [Unknown]
  - Parkinson^s disease [Unknown]
  - Fluid retention [Unknown]
  - Mental disorder [Unknown]
  - Fungal infection [Unknown]
  - Product size issue [Unknown]
  - Syncope [Unknown]
  - Loss of personal independence in daily activities [Unknown]
  - Peripheral swelling [Unknown]
  - Balance disorder [Unknown]
  - Off label use [Unknown]
  - Dizziness [Unknown]
  - Hypertension [Unknown]
  - Incontinence [Not Recovered/Not Resolved]
  - Malaise [Unknown]
  - Headache [Unknown]
  - Overdose [Unknown]
  - Product colour issue [Unknown]
  - Polyuria [Unknown]
  - Erythema [Unknown]
  - Pain in extremity [Unknown]

NARRATIVE: CASE EVENT DATE: 2018
